FAERS Safety Report 8286372-9 (Version None)
Quarter: 2012Q2

REPORT INFORMATION
  Report Type: 
  Country: None (occurrence: None)
  Receive Date: 20120411
  Receipt Date: 20120411
  Transmission Date: 20120825
  Serious: Yes (Life-Threatening, Hospitalization, Disabling, Other)
  Sender: FDA-Public Use
  Company Number: None

PATIENT
  Sex: Female
  Weight: 72.5755 kg

DRUGS (1)
  1. ISOTRETINOIN [Suspect]
     Indication: SEBORRHOEA
     Dates: start: 20090901, end: 20100101

REACTIONS (9)
  - DIABETES MELLITUS [None]
  - PARANOIA [None]
  - MAMMOPLASTY [None]
  - SUICIDAL BEHAVIOUR [None]
  - DYSPNOEA [None]
  - DEPRESSION [None]
  - SCHIZOPHRENIFORM DISORDER [None]
  - MENTAL DISORDER [None]
  - CONCUSSION [None]
